FAERS Safety Report 5388019-8 (Version None)
Quarter: 2007Q3

REPORT INFORMATION
  Report Type: 
  Country: None (occurrence: None)
  Receive Date: 20070712
  Receipt Date: 20070702
  Transmission Date: 20080115
  Serious: Yes (Hospitalization)
  Sender: FDA-Public Use
  Company Number: 16919

PATIENT
  Age: 16 Year
  Sex: Male

DRUGS (3)
  1. ACETYLCYSTEINE [Suspect]
     Dosage: 9 G ONCE IV
     Route: 042
     Dates: start: 20070215, end: 20070216
  2. EFFEXOR [Concomitant]
  3. ACETAMINOPHEN [Concomitant]

REACTIONS (1)
  - ANAPHYLACTOID REACTION [None]
